FAERS Safety Report 24961762 (Version 1)
Quarter: 2025Q1

REPORT INFORMATION
  Report Type: Spontaneous
  Country: US (occurrence: None)
  Receive Date: 20250212
  Receipt Date: 20250212
  Transmission Date: 20250408
  Serious: Yes (Other)
  Sender: FDA-CTU
  Company Number: None

PATIENT
  Age: 53 Year
  Sex: Female

DRUGS (1)
  1. ADEMPAS [Suspect]
     Active Substance: RIOCIGUAT
     Indication: Pulmonary hypertension
     Dosage: FREQUENCY : 3 TIMES A DAY;?
     Route: 048
     Dates: start: 20240621

REACTIONS (8)
  - Pyrexia [None]
  - Dyspnoea [None]
  - Cough [None]
  - Chest pain [None]
  - Asthenia [None]
  - Influenza like illness [None]
  - Dehydration [None]
  - Hyponatraemia [None]

NARRATIVE: CASE EVENT DATE: 20250111
